FAERS Safety Report 5364313-1 (Version None)
Quarter: 2007Q2

REPORT INFORMATION
  Report Type: 
  Country: None (occurrence: None)
  Receive Date: 20070620
  Receipt Date: 20070619
  Transmission Date: 20071010
  Serious: Yes (Other)
  Sender: FDA-Public Use
  Company Number: NL-MERCK-0706NLD00013

PATIENT
  Age: 7 Year
  Sex: Male

DRUGS (2)
  1. SINGULAIR [Suspect]
     Indication: DYSPNOEA
     Route: 048
     Dates: start: 20070604, end: 20070605
  2. ALBUTEROL SULFATE [Concomitant]
     Dates: start: 20070531

REACTIONS (4)
  - CONFUSIONAL STATE [None]
  - LIP SWELLING [None]
  - PAIN [None]
  - PYREXIA [None]
